FAERS Safety Report 10913199 (Version 1)
Quarter: 2015Q1

REPORT INFORMATION
  Report Type: Spontaneous
  Country: US (occurrence: None)
  Receive Date: 20150311
  Receipt Date: 20150311
  Transmission Date: 20150721
  Serious: No
  Sender: FDA-Public Use
  Company Number: None

PATIENT
  Age: 53 Year
  Sex: Female
  Weight: 56.25 kg

DRUGS (4)
  1. PROGESTERONE 100MG [Suspect]
     Active Substance: PROGESTERONE
     Indication: VULVOVAGINAL DRYNESS
     Dosage: 1 PILL, ONCE DAILY, TAKEN BY MOUTH
     Route: 048
     Dates: start: 20141230, end: 20150120
  2. PROGESTERONE 100MG [Suspect]
     Active Substance: PROGESTERONE
     Indication: HOT FLUSH
     Dosage: 1 PILL, ONCE DAILY, TAKEN BY MOUTH
     Route: 048
     Dates: start: 20141230, end: 20150120
  3. ARMOUR THYROID [Concomitant]
     Active Substance: THYROID, PORCINE\THYROID, UNSPECIFIED
  4. PROGESTERONE 100MG [Suspect]
     Active Substance: PROGESTERONE
     Indication: PROGESTERONE DECREASED
     Dosage: 1 PILL, ONCE DAILY, TAKEN BY MOUTH
     Route: 048
     Dates: start: 20141230, end: 20150120

REACTIONS (3)
  - Breast pain [None]
  - Nausea [None]
  - Headache [None]

NARRATIVE: CASE EVENT DATE: 20141230
